FAERS Safety Report 4493189-X (Version None)
Quarter: 2004Q4

REPORT INFORMATION
  Report Type: 
  Country: None (occurrence: None)
  Receive Date: 20041104
  Receipt Date: 20041011
  Transmission Date: 20050328
  Serious: Yes (Other)
  Sender: FDA-Public Use
  Company Number: PHNU2004DE03485

PATIENT
  Age: 66 Year
  Sex: Male
  Weight: 72 kg

DRUGS (1)
  1. ZOMETA [Suspect]
     Dosage: 4 MG, QMO
     Dates: start: 20040518, end: 20040903

REACTIONS (4)
  - DYSPHAGIA [None]
  - OROPHARYNGEAL SWELLING [None]
  - SPEECH DISORDER [None]
  - SWOLLEN TONGUE [None]
